FAERS Safety Report 7228076-7 (Version None)
Quarter: 2011Q1

REPORT INFORMATION
  Report Type: 
  Country: None (occurrence: None)
  Receive Date: 20110114
  Receipt Date: 20100709
  Transmission Date: 20110831
  Serious: No
  Sender: FDA-Public Use
  Company Number: US-PFIZER INC-2010086020

PATIENT
  Sex: Female

DRUGS (1)
  1. MYCOBUTIN [Suspect]
     Dosage: UNK
     Route: 048

REACTIONS (3)
  - MALAISE [None]
  - ADVERSE DRUG REACTION [None]
  - MOVEMENT DISORDER [None]
